FAERS Safety Report 9238470 (Version 1)
Quarter: 2013Q2

REPORT INFORMATION
  Report Type: Spontaneous
  Country: US (occurrence: None)
  Receive Date: 20130417
  Receipt Date: 20130417
  Transmission Date: 20140414
  Serious: Yes (Death, Other)
  Sender: FDA-Public Use
  Company Number: None

PATIENT
  Age: 37 Year
  Sex: Female

DRUGS (4)
  1. ABILIFY MAINTENA [Suspect]
     Dosage: 1 INJECTION
     Route: 030
     Dates: start: 20130412, end: 20130412
  2. LAMICTAL [Concomitant]
  3. BUSPAR [Concomitant]
  4. CELEXA [Concomitant]

REACTIONS (3)
  - Convulsion [None]
  - Injection site rash [None]
  - Injection site mass [None]
